FAERS Safety Report 4312988-8 (Version None)
Quarter: 2004Q1

REPORT INFORMATION
  Report Type: 
  Country: None (occurrence: None)
  Receive Date: 20040305
  Receipt Date: 20040305
  Transmission Date: 20041129
  Serious: No
  Sender: FDA-Public Use
  Company Number: None

PATIENT
  Sex: Female

DRUGS (1)
  1. PROTAMINE SULFATE [Suspect]

REACTIONS (5)
  - BLOOD PRESSURE DECREASED [None]
  - OEDEMA PERIPHERAL [None]
  - PALLOR [None]
  - PULSE PRESSURE DECREASED [None]
  - RASH MACULAR [None]
